FAERS Safety Report 18572093 (Version 2)
Quarter: 2020Q4

REPORT INFORMATION
  Report Type: Spontaneous
  Country: ES (occurrence: ES)
  Receive Date: 20201202
  Receipt Date: 20201223
  Transmission Date: 20210114
  Serious: Yes (Other)
  Sender: FDA-Public Use
  Company Number: ES-DSJP-DSE-2020-136153

PATIENT
  Age: 54 Year
  Sex: Female

DRUGS (1)
  1. OLMESARTAN MEDOXOMIL. [Suspect]
     Active Substance: OLMESARTAN MEDOXOMIL
     Indication: HYPERTENSION
     Dosage: 40 MG, QD

REACTIONS (5)
  - Lymphocytic infiltration [Recovered/Resolved]
  - Hepatic steatosis [Recovered/Resolved]
  - Antinuclear antibody positive [Recovered/Resolved]
  - Drug-induced liver injury [Recovered/Resolved]
  - Hepatic fibrosis [Recovered/Resolved]
